FAERS Safety Report 8152042-0 (Version None)
Quarter: 2012Q1

REPORT INFORMATION
  Report Type: 
  Country: None (occurrence: None)
  Receive Date: 20120214
  Receipt Date: 20120202
  Transmission Date: 20120608
  Serious: Yes (Other)
  Sender: FDA-Public Use
  Company Number: AUR-APL-2012-00885

PATIENT
  Sex: Male

DRUGS (2)
  1. LAMOTRIGINE [Suspect]
     Indication: EPILEPSY
     Dosage: (1000 MG, 1 D), TRANSPLACENTAL, (1000 MG, 1 D), TRANSMAMMARY
     Route: 064
  2. LEVETIRACETAM [Suspect]
     Indication: EPILEPSY
     Dosage: (2000 MG, 1 D), TRANSPLACENTAL, (2000 MG, 1 D), TRANSMAMMARY
     Route: 064

REACTIONS (4)
  - BRADYCARDIA [None]
  - MATERNAL DRUGS AFFECTING FOETUS [None]
  - EXPOSURE DURING BREAST FEEDING [None]
  - OXYGEN SATURATION DECREASED [None]
